FAERS Safety Report 11982893 (Version 1)
Quarter: 2016Q1

REPORT INFORMATION
  Report Type: Spontaneous
  Country: US (occurrence: None)
  Receive Date: 20160129
  Receipt Date: 20160129
  Transmission Date: 20160526
  Serious: Yes (Life-Threatening, Hospitalization)
  Sender: FDA-Public Use
  Company Number: None

PATIENT
  Age: 56 Year
  Sex: Male
  Weight: 81.65 kg

DRUGS (10)
  1. SUPER B COMPLEX [Concomitant]
     Active Substance: CYANOCOBALAMIN\DEXPANTHENOL\NIACINAMIDE\PYRIDOXINE HYDROCHLORIDE\RIBOFLAVIN 5^-PHOSPHATE SODIUM\THIAMINE HYDROCHLORIDE\VITAMIN B COMPLEX
  2. VITAMIN C 1000 MG [Concomitant]
  3. MILK THISTLE [Concomitant]
     Active Substance: MILK THISTLE
  4. LANSOPRAZOLE DELAYED RELEASE CAPSULES, 15 MG AND 30 MG [Concomitant]
     Active Substance: LANSOPRAZOLE
  5. TURMERIC [Concomitant]
     Active Substance: TURMERIC
  6. MELOXICAM. [Suspect]
     Active Substance: MELOXICAM
     Indication: ARTHRITIS
     Dosage: 1 PILL ONCE DAILY TAKEN BY MOUTH
     Route: 048
     Dates: start: 20160119, end: 20160124
  7. SUPER K WITH ADVANCED K2 COMPLEX [Concomitant]
  8. D3 5000 IU [Concomitant]
  9. LOVASTATIN. [Concomitant]
     Active Substance: LOVASTATIN
  10. CINNAMON. [Concomitant]
     Active Substance: CINNAMON

REACTIONS (9)
  - Cardiac stress test abnormal [None]
  - Painful respiration [None]
  - Cold sweat [None]
  - Visual impairment [None]
  - Chest pain [None]
  - Asthenia [None]
  - Blood pressure increased [None]
  - Dizziness [None]
  - Anxiety [None]

NARRATIVE: CASE EVENT DATE: 20160124
